FAERS Safety Report 7626889-0 (Version None)
Quarter: 2011Q3

REPORT INFORMATION
  Report Type: 
  Country: None (occurrence: None)
  Receive Date: 20110721
  Receipt Date: 20110705
  Transmission Date: 20111222
  Serious: Yes (Hospitalization)
  Sender: FDA-Public Use
  Company Number: US-BAYER-2011-000426

PATIENT
  Age: 26 Year
  Sex: Female
  Weight: 102 kg

DRUGS (1)
  1. YAZ [Suspect]
     Indication: ACNE
     Dosage: UNK
     Route: 048
     Dates: start: 20090801, end: 20091201

REACTIONS (5)
  - CHOLELITHIASIS [None]
  - GALLBLADDER DISORDER [None]
  - PANCREATITIS [None]
  - PAIN [None]
  - INJURY [None]
